FAERS Safety Report 23093679 (Version 1)
Quarter: 2023Q4

REPORT INFORMATION
  Report Type: Report from Study
  Country: US (occurrence: US)
  Receive Date: 20231023
  Receipt Date: 20231023
  Transmission Date: 20240109
  Serious: Yes (Hospitalization)
  Sender: FDA-Public Use
  Company Number: US-ABBVIE-5458513

PATIENT
  Age: 57 Year
  Sex: Female

DRUGS (1)
  1. RINVOQ [Suspect]
     Active Substance: UPADACITINIB
     Indication: Migraine without aura
     Dosage: TOOK ONE TABLET BY MOUTH ONCE DAILY
     Route: 048
     Dates: start: 202109, end: 202310

REACTIONS (2)
  - Bacterial infection [Unknown]
  - Anaemia [Unknown]

NARRATIVE: CASE EVENT DATE: 20230616
